FAERS Safety Report 15783299 (Version 4)
Quarter: 2019Q2

REPORT INFORMATION
  Report Type: Spontaneous
  Country: US (occurrence: US)
  Receive Date: 20190102
  Receipt Date: 20190531
  Transmission Date: 20190711
  Serious: No
  Sender: FDA-Public Use
  Company Number: US-PFIZER INC-2017329010

PATIENT
  Age: 72 Year
  Sex: Female
  Weight: 77.98 kg

DRUGS (11)
  1. LYRICA [Suspect]
     Active Substance: PREGABALIN
     Indication: AUTONOMIC NEUROPATHY
     Dosage: 75 MG, 2X/DAY
     Route: 048
  2. LYRICA [Suspect]
     Active Substance: PREGABALIN
     Dosage: UNK
  3. GABAPENTIN. [Concomitant]
     Active Substance: GABAPENTIN
     Dosage: 300 MG, UNK
  4. VITAMIN C [Concomitant]
     Active Substance: ASCORBIC ACID
     Indication: INFECTION
     Dosage: 500 MG, 2X/DAY
     Route: 048
  5. WARFARIN [Concomitant]
     Active Substance: WARFARIN
     Indication: THROMBOSIS
     Dosage: 5-7 1/2 MG, 1X/DAY
  6. WARFARIN [Concomitant]
     Active Substance: WARFARIN
     Dosage: 7.5 MG, 1X/DAY (TUESDAY, THURSDAY, SATURDAY)
     Route: 048
  7. WARFARIN [Concomitant]
     Active Substance: WARFARIN
     Dosage: 7 MG, 1X/DAY (SUNDAY, MONDAY, WEDNESDAY, FRIDAY)
     Route: 048
  8. METHENAMINE [Concomitant]
     Active Substance: METHENAMINE
     Indication: CYSTITIS
     Dosage: 500 MG, 2X/DAY
     Route: 048
  9. LYRICA [Suspect]
     Active Substance: PREGABALIN
     Indication: BREAKTHROUGH PAIN
     Dosage: 150 MG, 2X/DAY (180 CAPSULE FOR 90 DAYS)
     Route: 048
     Dates: start: 2017
  10. LYRICA [Suspect]
     Active Substance: PREGABALIN
     Dosage: 75 MG, AS NEEDED (1 CAPSULE ONCE A DAY AS NEEDED)
     Route: 048
     Dates: start: 201807
  11. LOVASTATIN. [Concomitant]
     Active Substance: LOVASTATIN
     Dosage: 40 MG, 1X/DAY

REACTIONS (3)
  - Burning sensation [Unknown]
  - Intentional product misuse [Unknown]
  - Fatigue [Unknown]
